FAERS Safety Report 4718869-X (Version None)
Quarter: 2005Q3

REPORT INFORMATION
  Report Type: 
  Country: None (occurrence: None)
  Receive Date: 20050719
  Receipt Date: 20050705
  Transmission Date: 20060218
  Serious: Yes (Death, Life-Threatening, Hospitalization, Disabling)
  Sender: FDA-Public Use
  Company Number: 2004EU001128

PATIENT
  Age: 61 Year
  Sex: Male

DRUGS (5)
  1. FK506 (TACROLIMUS) CAPSULE [Suspect]
     Indication: LIVER TRANSPLANT
     Dosage: 3.00 MG, BID, ORAL
     Route: 048
     Dates: start: 20040527
  2. CELLCEPT [Suspect]
     Indication: LIVER TRANSPLANT
     Dosage: 1000.00 MG, BID, ORAL
     Route: 048
     Dates: start: 20040522
  3. ZENAPAX [Suspect]
     Indication: LIVER TRANSPLANT
     Dosage: 130.00 MG, UNKNOWN/D, IV NOS;  70.00 MG, UNKNOWN/D, IV NOS
     Route: 042
     Dates: start: 20040522, end: 20040522
  4. ZENAPAX [Suspect]
     Indication: LIVER TRANSPLANT
     Dosage: 130.00 MG, UNKNOWN/D, IV NOS;  70.00 MG, UNKNOWN/D, IV NOS
     Route: 042
     Dates: start: 20040601, end: 20040601
  5. SOLU-MEDROL [Concomitant]

REACTIONS (4)
  - ABDOMINAL ABSCESS [None]
  - CARDIAC ARREST [None]
  - PNEUMONIA KLEBSIELLA [None]
  - SEPSIS [None]
